FAERS Safety Report 12187705 (Version 2)
Quarter: 2016Q2

REPORT INFORMATION
  Report Type: Report from Study
  Country: US (occurrence: US)
  Receive Date: 20160317
  Receipt Date: 20160405
  Transmission Date: 20160815
  Serious: Yes (Other)
  Sender: FDA-Public Use
  Company Number: US-BIOGEN-2016BI00204428

PATIENT
  Sex: Female
  Weight: 51.3 kg

DRUGS (1)
  1. TECFIDERA [Suspect]
     Active Substance: DIMETHYL FUMARATE
     Indication: MULTIPLE SCLEROSIS
     Route: 048
     Dates: start: 2013

REACTIONS (5)
  - Thyroid mass [Unknown]
  - Dysphagia [Unknown]
  - Visual acuity reduced [Unknown]
  - Weight decreased [Unknown]
  - Flushing [Recovered/Resolved]
